FAERS Safety Report 6447606-6 (Version None)
Quarter: 2009Q4

REPORT INFORMATION
  Report Type: 
  Country: None (occurrence: None)
  Receive Date: 20091119
  Receipt Date: 20090804
  Transmission Date: 20100525
  Serious: Yes (Other)
  Sender: FDA-Public Use
  Company Number: US-AMGEN-KDL356159

PATIENT
  Sex: Female

DRUGS (3)
  1. ENBREL [Suspect]
     Indication: PSORIASIS
     Route: 058
     Dates: start: 20071128, end: 20090707
  2. ENBREL [Suspect]
     Indication: PSORIATIC ARTHROPATHY
  3. ACYCLOVIR [Concomitant]
     Dates: start: 20080501

REACTIONS (3)
  - HYPOAESTHESIA [None]
  - KERATITIS [None]
  - PARAESTHESIA [None]
